FAERS Safety Report 7081855-1 (Version None)
Quarter: 2010Q4

REPORT INFORMATION
  Report Type: 
  Country: None (occurrence: None)
  Receive Date: 20101103
  Receipt Date: 20101020
  Transmission Date: 20110411
  Serious: Yes (Hospitalization, Other)
  Sender: FDA-Public Use
  Company Number: JP-AMGEN-QUU425891

PATIENT

DRUGS (23)
  1. ENBREL [Suspect]
     Indication: RHEUMATOID ARTHRITIS
     Dosage: 50 MG, QWK
     Route: 058
     Dates: start: 20050703, end: 20050801
  2. ENBREL [Suspect]
     Dosage: 12.5 MG, QWK
     Route: 058
     Dates: start: 20060701, end: 20060901
  3. ENBREL [Suspect]
     Dosage: LYOPHILIZED; 25 MG / WEEK
     Route: 058
     Dates: start: 20060901, end: 20070301
  4. ENBREL [Suspect]
     Dosage: LYOPHILIZED; 50 MG / WEEK
     Route: 058
     Dates: start: 20070301, end: 20080801
  5. ENBREL [Suspect]
     Dosage: SOLUTION FOR INJECTION; 25 MG / WEEK
     Route: 058
     Dates: start: 20080801
  6. ENBREL [Suspect]
     Dosage: SOLUTION FOR INJECTION; 25 MG / WEEK
     Route: 058
     Dates: end: 20100705
  7. PREDNISOLONE [Suspect]
     Indication: RHEUMATOID ARTHRITIS
     Route: 048
     Dates: start: 20050703, end: 20050801
  8. PREDNISOLONE [Suspect]
     Dosage: JUST BEFORE THE ADMINISTRATION OF ENBREL, 1 MG / DAY WAS ADMINISTERED
     Route: 048
     Dates: start: 20050701
  9. PREDNISOLONE [Suspect]
     Route: 048
     Dates: start: 20050801, end: 20051101
  10. PREDNISOLONE [Suspect]
     Route: 048
     Dates: start: 20051101, end: 20060101
  11. PREDNISOLONE [Suspect]
     Route: 048
     Dates: start: 20060101, end: 20060501
  12. PREDNISOLONE [Suspect]
     Route: 048
     Dates: start: 20060501, end: 20060901
  13. PREDNISOLONE [Suspect]
     Route: 048
     Dates: start: 20060901, end: 20070101
  14. PREDNISOLONE [Suspect]
     Route: 048
     Dates: start: 20070101, end: 20070801
  15. PREDNISOLONE [Suspect]
     Route: 048
     Dates: start: 20070801, end: 20090101
  16. PREDNISOLONE [Suspect]
     Route: 048
     Dates: start: 20090101, end: 20090301
  17. PREDNISOLONE [Suspect]
     Route: 048
     Dates: start: 20090301, end: 20091001
  18. PREDNISOLONE [Suspect]
     Route: 048
     Dates: start: 20091001, end: 20091201
  19. PREDNISOLONE [Suspect]
     Route: 048
     Dates: start: 20091201
  20. RHEUMATREX [Suspect]
     Indication: RHEUMATOID ARTHRITIS
     Route: 048
     Dates: start: 20090501, end: 20100507
  21. RHEUMATREX [Suspect]
     Route: 048
     Dates: start: 20100501, end: 20100711
  22. AMLODIPINE [Concomitant]
     Indication: HYPERTENSION
     Route: 048
  23. THIAMPHENICOL [Concomitant]
     Dosage: 20 MG, QD
     Dates: start: 20050901

REACTIONS (13)
  - ALANINE AMINOTRANSFERASE INCREASED [None]
  - ASPARTATE AMINOTRANSFERASE INCREASED [None]
  - BLOOD ALKALINE PHOSPHATASE INCREASED [None]
  - BLOOD LACTATE DEHYDROGENASE INCREASED [None]
  - BRONCHIAL OBSTRUCTION [None]
  - CONDITION AGGRAVATED [None]
  - DISSEMINATED TUBERCULOSIS [None]
  - GAMMA-GLUTAMYLTRANSFERASE INCREASED [None]
  - HEPATITIS B [None]
  - HEPATITIS C [None]
  - KNEE ARTHROPLASTY [None]
  - RHEUMATOID ARTHRITIS [None]
  - TYPE 2 DIABETES MELLITUS [None]
